FAERS Safety Report 13193927 (Version 1)
Quarter: 2017Q1

REPORT INFORMATION
  Report Type: Report from Study
  Country: US (occurrence: US)
  Receive Date: 20170207
  Receipt Date: 20170207
  Transmission Date: 20170428
  Serious: Yes (Other)
  Sender: FDA-Public Use
  Company Number: US-TEVA-736250USA

PATIENT
  Age: 63 Year
  Sex: Female

DRUGS (1)
  1. COPAXONE [Suspect]
     Active Substance: GLATIRAMER ACETATE
     Indication: MULTIPLE SCLEROSIS
     Route: 058
     Dates: start: 20170110

REACTIONS (10)
  - Dystonia [Unknown]
  - Pain [Unknown]
  - Hypertension [Unknown]
  - Vomiting [Unknown]
  - Feeling abnormal [Unknown]
  - Erythema [Unknown]
  - Loss of consciousness [Unknown]
  - Asthenia [Unknown]
  - Throat tightness [Unknown]
  - Dyspnoea [Unknown]

NARRATIVE: CASE EVENT DATE: 20170130
